FAERS Safety Report 7817201-2 (Version None)
Quarter: 2011Q4

REPORT INFORMATION
  Report Type: 
  Country: None (occurrence: None)
  Receive Date: 20111017
  Receipt Date: 20111017
  Transmission Date: 20120403
  Serious: Yes (Congenital Anomaly)
  Sender: FDA-Public Use
  Company Number: None

PATIENT
  Age: 21 Year
  Sex: Female
  Weight: 76.203 kg

DRUGS (1)
  1. EFFEXOR [Suspect]
     Indication: BIPOLAR I DISORDER
     Dosage: 150MG
     Route: 048
     Dates: start: 20021201, end: 20030714

REACTIONS (6)
  - EPILEPSY [None]
  - SENSORY INTEGRATIVE DYSFUNCTION [None]
  - ATTENTION DEFICIT/HYPERACTIVITY DISORDER [None]
  - GENDER IDENTITY DISORDER [None]
  - SINUS DISORDER [None]
  - MATERNAL DRUGS AFFECTING FOETUS [None]
